FAERS Safety Report 4336189-2 (Version None)
Quarter: 2004Q2

REPORT INFORMATION
  Report Type: 
  Country: None (occurrence: None)
  Receive Date: 20040407
  Receipt Date: 20040324
  Transmission Date: 20050107
  Serious: No
  Sender: FDA-Public Use
  Company Number: F02200400021

PATIENT
  Age: 80 Year
  Sex: Male

DRUGS (4)
  1. XATRAL - (ALFUZOSIN) - TABLET PR - 10 MG [Suspect]
     Indication: BENIGN PROSTATIC HYPERPLASIA
     Dosage: 10 MG OD, ORAL
     Route: 048
     Dates: start: 20010404
  2. OGAST (LANSOPRAZOLE) [Concomitant]
  3. CIBADREX (HYDROCHLOROTHIAZIDE/BENAZEPRIL) [Concomitant]
  4. BROMAZEPAM [Concomitant]

REACTIONS (2)
  - HEPATIC NEOPLASM MALIGNANT [None]
  - PRURITUS [None]
